FAERS Safety Report 14579027 (Version 1)
Quarter: 2020Q3

REPORT INFORMATION
  Report Type: Spontaneous
  Country: DE (occurrence: DE)
  Receive Date: 20180227
  Receipt Date: 20180227
  Transmission Date: 20201105
  Serious: Yes (Congenital Anomaly, Other)
  Sender: FDA-Public Use
  Company Number: DE-BAUSCH-BL-2018-005204

PATIENT
  Age: 1 Day
  Sex: Female
  Weight: 4.14 kg

DRUGS (5)
  1. PERTUSSIS VACCINE [Concomitant]
     Active Substance: PERTUSSIS VACCINE
     Indication: IMMUNISATION
     Dosage: ()
     Route: 064
  2. VENLAFAXINE [Suspect]
     Active Substance: VENLAFAXINE HYDROCHLORIDE
     Indication: ANXIETY DISORDER
     Dosage: 225 [MG/D ]/ INITIAL 150 MG/D, DOSAGE INCREASE TO 225MG/D FROM WEEK 11 ()
     Route: 064
  3. LANTUS [Concomitant]
     Active Substance: INSULIN GLARGINE
     Indication: TYPE 1 DIABETES MELLITUS
     Dosage: ()
     Route: 064
  4. FINGOLIMOD. [Suspect]
     Active Substance: FINGOLIMOD
     Indication: MULTIPLE SCLEROSIS
     Dosage: 0.5 [MG/D ]
     Route: 064
  5. HUMALOG [Concomitant]
     Active Substance: INSULIN LISPRO
     Indication: TYPE 1 DIABETES MELLITUS
     Dosage: ()
     Route: 064

REACTIONS (4)
  - Ventricular septal defect [Unknown]
  - Large for dates baby [Unknown]
  - Transient tachypnoea of the newborn [Recovered/Resolved]
  - Maternal drugs affecting foetus [Unknown]

NARRATIVE: CASE EVENT DATE: 20170706
